FAERS Safety Report 4854375-X (Version None)
Quarter: 2005Q4

REPORT INFORMATION
  Report Type: 
  Country: None (occurrence: None)
  Receive Date: 20051213
  Receipt Date: 20051130
  Transmission Date: 20060501
  Serious: Yes (Hospitalization, Other)
  Sender: FDA-Public Use
  Company Number: GB-2005-023120

PATIENT
  Age: 38 Year
  Sex: Female
  Weight: 63 kg

DRUGS (2)
  1. MIRENA [Suspect]
     Indication: CONTRACEPTION
     Dosage: 20 UG/DAY,  CONT,INTRA-UTERINE
     Route: 015
     Dates: start: 20000520, end: 20050802
  2. CARBAMAZEPINE [Concomitant]

REACTIONS (5)
  - ABORTION INDUCED [None]
  - CERVICAL DYSPLASIA [None]
  - CHOLELITHIASIS [None]
  - JAUNDICE [None]
  - PREGNANCY WITH CONTRACEPTIVE DEVICE [None]
